FAERS Safety Report 10174525 (Version 1)
Quarter: 2014Q2

REPORT INFORMATION
  Report Type: Spontaneous
  Country: US (occurrence: None)
  Receive Date: 20140416
  Receipt Date: 20140416
  Transmission Date: 20141212
  Serious: No
  Sender: FDA-Public Use
  Company Number: 163-POMAL-13125441

PATIENT
  Age: 69 Year
  Sex: Female
  Weight: 57 kg

DRUGS (10)
  1. POMALYST [Suspect]
     Indication: PLASMA CELL MYELOMA
     Dosage: 21 IN 28 D
     Route: 048
     Dates: start: 20130619
  2. DEXAMETHASONE (DEXAMETHASONE) (TABLETS) [Concomitant]
  3. PAMIDRONATE (PAMIDRONATE DISODIUM) [Concomitant]
  4. FLUOXETINE HCL (FLUOXETINE HYDROCHLORIDE) (TABLETS) [Concomitant]
  5. ACYCLOVIR (ACICLOVIR) (TABLETS) [Concomitant]
  6. ASPIRINE (ACETYLSALICYLIC ACID) (CHEWABLE TABLET) [Concomitant]
  7. MULTIVITAMINS (MULTIVITAMINS) (TABLETS) [Concomitant]
  8. VITAMIN D3 (COLECALCIFEROL) (TABLETS) [Concomitant]
  9. CITRACAL PLUS BONE DENSITY (CITRACAL PLUS BONE DENSITY BUILDER) (TABLETS) [Concomitant]
  10. FOLIC ACID (FOLIC ACID) (TABLETS) [Concomitant]

REACTIONS (2)
  - Nasopharyngitis [None]
  - Sinus disorder [None]
